FAERS Safety Report 6929149-6 (Version None)
Quarter: 2010Q3

REPORT INFORMATION
  Report Type: 
  Country: None (occurrence: None)
  Receive Date: 20100817
  Receipt Date: 20100812
  Transmission Date: 20110219
  Serious: Yes (Hospitalization)
  Sender: FDA-Public Use
  Company Number: US-MERCK-1008USA01337

PATIENT
  Age: 72 Year
  Sex: Female

DRUGS (7)
  1. DECADRON [Suspect]
     Indication: MULTIPLE MYELOMA
     Route: 048
     Dates: start: 20100218, end: 20100503
  2. DECADRON [Suspect]
     Route: 048
  3. THALOMID [Suspect]
     Indication: MULTIPLE MYELOMA
     Route: 048
     Dates: start: 20100219, end: 20100513
  4. THALOMID [Suspect]
     Route: 048
     Dates: start: 20100518
  5. COREG [Concomitant]
     Indication: HYPERTENSION
     Route: 048
     Dates: start: 20091201
  6. LISINOPRIL [Concomitant]
     Indication: HYPERTENSION
     Route: 048
     Dates: start: 20091201
  7. LEVAQUIN [Concomitant]
     Route: 065

REACTIONS (3)
  - DIZZINESS [None]
  - HYPERTENSION [None]
  - PNEUMONIA [None]
